FAERS Safety Report 8299256-7 (Version None)
Quarter: 2012Q2

REPORT INFORMATION
  Report Type: 
  Country: None (occurrence: None)
  Receive Date: 20120419
  Receipt Date: 20120412
  Transmission Date: 20120825
  Serious: Yes (Other)
  Sender: FDA-Public Use
  Company Number: US-JNJFOC-20120405741

PATIENT
  Sex: Female
  Weight: 52.16 kg

DRUGS (2)
  1. SIMPONI [Suspect]
     Route: 058
     Dates: start: 20120301
  2. SIMPONI [Suspect]
     Indication: RHEUMATOID ARTHRITIS
     Route: 058
     Dates: start: 20090101, end: 20120101

REACTIONS (2)
  - MACULAR HOLE [None]
  - DRUG INEFFECTIVE [None]
